FAERS Safety Report 21101784 (Version 3)
Quarter: 2025Q1

REPORT INFORMATION
  Report Type: Spontaneous
  Country: US (occurrence: US)
  Receive Date: 20220719
  Receipt Date: 20250127
  Transmission Date: 20250409
  Serious: No
  Sender: MYLAN
  Company Number: US-MYLANLABS-2022M1050547

PATIENT
  Sex: Female
  Weight: 81.65 kg

DRUGS (4)
  1. ARIXTRA [Suspect]
     Active Substance: FONDAPARINUX SODIUM
     Indication: Product used for unknown indication
     Route: 065
  2. ARIXTRA [Suspect]
     Active Substance: FONDAPARINUX SODIUM
     Route: 065
  3. FONDAPARINUX SODIUM [Suspect]
     Active Substance: FONDAPARINUX SODIUM
     Indication: Product used for unknown indication
     Route: 065
  4. FONDAPARINUX SODIUM [Suspect]
     Active Substance: FONDAPARINUX SODIUM
     Route: 065

REACTIONS (5)
  - Product availability issue [Unknown]
  - Needle issue [Unknown]
  - Product packaging issue [Unknown]
  - Coagulopathy [Unknown]
  - Device issue [Unknown]
